FAERS Safety Report 22273211 (Version 1)
Quarter: 2023Q2

REPORT INFORMATION
  Report Type: Spontaneous
  Country: US (occurrence: None)
  Receive Date: 20230501
  Receipt Date: 20230501
  Transmission Date: 20230721
  Serious: Yes (Hospitalization)
  Sender: FDA-Public Use
  Company Number: None

PATIENT
  Age: 50 Year
  Sex: Female

DRUGS (24)
  1. AMBRISENTAN [Suspect]
     Active Substance: AMBRISENTAN
     Indication: Pulmonary hypertension
     Dosage: FREQUENCY : DAILY;?
     Route: 048
     Dates: start: 20181214
  2. TREPROSTINIL [Concomitant]
     Active Substance: TREPROSTINIL
  3. FUROSEMIDE [Concomitant]
     Active Substance: FUROSEMIDE
  4. TIZANIDINE [Concomitant]
     Active Substance: TIZANIDINE
  5. METHYLPREDNISOLONE [Concomitant]
     Active Substance: METHYLPREDNISOLONE
  6. PENTOXIFYLLINE [Concomitant]
     Active Substance: PENTOXIFYLLINE
  7. TRETINOIN TOP CREAM [Concomitant]
  8. DIGOXIN [Concomitant]
     Active Substance: DIGOXIN
  9. MONTELUKAST [Concomitant]
     Active Substance: MONTELUKAST SODIUM
  10. SUMATRIPTAN [Concomitant]
     Active Substance: SUMATRIPTAN
  11. METOCLOPRAMIDE [Concomitant]
     Active Substance: METOCLOPRAMIDE
  12. SELENIUM [Concomitant]
     Active Substance: SELENIUM
  13. FLUOXETINE [Concomitant]
     Active Substance: FLUOXETINE HYDROCHLORIDE
  14. TOPIRAMATE [Concomitant]
     Active Substance: TOPIRAMATE
  15. TRAMADOL [Concomitant]
     Active Substance: TRAMADOL
  16. NABUMETONE [Concomitant]
     Active Substance: NABUMETONE
  17. AMLODIPINE [Concomitant]
     Active Substance: AMLODIPINE BESYLATE
  18. NORCO [Concomitant]
     Active Substance: ACETAMINOPHEN\HYDROCODONE BITARTRATE
  19. MYCOPHENOLIC ACID [Concomitant]
     Active Substance: MYCOPHENOLIC ACID
  20. ESOMEPRAZOLE [Concomitant]
     Active Substance: ESOMEPRAZOLE
  21. POTASSIUM CHLORIDE [Concomitant]
     Active Substance: POTASSIUM CHLORIDE
  22. PRADAXA [Concomitant]
     Active Substance: DABIGATRAN ETEXILATE MESYLATE
  23. METOPROLOL [Concomitant]
     Active Substance: METOPROLOL
  24. METHIMAZOLE [Concomitant]
     Active Substance: METHIMAZOLE

REACTIONS (2)
  - Atrial fibrillation [None]
  - Acute respiratory failure [None]

NARRATIVE: CASE EVENT DATE: 20230428
